FAERS Safety Report 17081604 (Version 1)
Quarter: 2019Q4

REPORT INFORMATION
  Report Type: Spontaneous
  Country: US (occurrence: US)
  Receive Date: 20191126
  Receipt Date: 20191126
  Transmission Date: 20200122
  Serious: Yes (Hospitalization)
  Sender: FDA-Public Use
  Company Number: None

PATIENT
  Age: 42 Year
  Sex: Female
  Weight: 69.3 kg

DRUGS (1)
  1. LEVOFLOXIN [Suspect]
     Active Substance: LEVOFLOXACIN
     Indication: URINARY TRACT INFECTION
     Dosage: ?          QUANTITY:1 TABLET(S);?
     Route: 048
     Dates: start: 20181011, end: 20181023

REACTIONS (15)
  - Headache [None]
  - Feeling abnormal [None]
  - Weight increased [None]
  - Tendon pain [None]
  - Depersonalisation/derealisation disorder [None]
  - Crying [None]
  - Weight decreased [None]
  - Anxiety [None]
  - Gait disturbance [None]
  - Pain [None]
  - Arthralgia [None]
  - Asthenia [None]
  - Panic attack [None]
  - Gastrointestinal disorder [None]
  - Myalgia [None]

NARRATIVE: CASE EVENT DATE: 20181011
